FAERS Safety Report 9175724 (Version 2)
Quarter: 2012Q4

REPORT INFORMATION
  Report Type: 
  Country: IT (occurrence: IT)
  Receive Date: 20120917
  Receipt Date: 20120917
  Transmission Date: 20130627
  Serious: Yes (Other)
  Sender: FDA-Public Use
  Company Number: IT-BRACCO-001960

PATIENT
  Age: 34 None
  Sex: Female

DRUGS (16)
  1. DAFLON [Concomitant]
     Indication: VENOUS INSUFFICIENCY
     Route: 048
  2. CLEXANE [Concomitant]
     Indication: THROMBOSIS PROPHYLAXIS
     Route: 058
  3. NEURONTIN [Concomitant]
     Indication: NEURALGIA
     Route: 048
  4. MULTIHANCE [Suspect]
     Indication: NUCLEAR MAGNETIC RESONANCE IMAGING
     Route: 042
     Dates: start: 20120827, end: 20120827
  5. NICOZID [Concomitant]
     Indication: MENINGITIS TUBERCULOUS
     Route: 048
  6. BENEXOL [Concomitant]
     Indication: NORMOCHROMIC NORMOCYTIC ANAEMIA
     Route: 048
  7. BENADON [Concomitant]
     Indication: DRUG TOXICITY PROPHYLAXIS
     Route: 048
  8. LASIX [Concomitant]
     Indication: OEDEMA PERIPHERAL
     Route: 048
  9. FERROGRAD C [Concomitant]
     Indication: NORMOCHROMIC NORMOCYTIC ANAEMIA
     Route: 048
  10. FOLIDEX [Concomitant]
     Indication: NORMOCHROMIC NORMOCYTIC ANAEMIA
     Route: 048
  11. CIPROXIN [Concomitant]
     Indication: CYSTITIS
     Route: 048
     Dates: start: 20120821, end: 20120824
  12. CODEX [Concomitant]
     Indication: GASTROENTERITIS CLOSTRIDIAL
     Route: 048
  13. EUTIROX [Concomitant]
     Indication: THYROIDITIS CHRONIC
     Route: 048
  14. PEPTAZOL [Concomitant]
     Indication: PROPHYLAXIS AGAINST GASTROINTESTINAL ULCER
     Route: 048
  15. RIFADIN [Concomitant]
     Indication: MENINGITIS TUBERCULOUS
  16. LAROXYL [Concomitant]
     Indication: NEURALGIA
     Route: 048

REACTIONS (2)
  - Thrombocytopenia [Recovered/Resolved]
  - Pyrexia [Recovered/Resolved]
